FAERS Safety Report 19735414 (Version 1)
Quarter: 2021Q3

REPORT INFORMATION
  Report Type: Spontaneous
  Country: US (occurrence: US)
  Receive Date: 20210824
  Receipt Date: 20210824
  Transmission Date: 20211014
  Serious: No
  Sender: FDA-Public Use
  Company Number: US-OREXO US, INC.-ORE202106-000032

PATIENT
  Sex: Female

DRUGS (7)
  1. ZUBSOLV [Suspect]
     Active Substance: BUPRENORPHINE HYDROCHLORIDE\NALOXONE HYDROCHLORIDE
     Indication: DRUG DEPENDENCE
     Dates: start: 201601
  2. XANAX [Concomitant]
     Active Substance: ALPRAZOLAM
  3. IRBESARTAN. [Concomitant]
     Active Substance: IRBESARTAN
  4. VITAMIN C [Concomitant]
     Active Substance: ASCORBIC ACID
  5. ARMOUR THYROID [Concomitant]
     Active Substance: THYROID, PORCINE
  6. TRULICITY [Concomitant]
     Active Substance: DULAGLUTIDE
  7. VITAMIN D [Concomitant]
     Active Substance: VITAMIN D NOS

REACTIONS (2)
  - Dental caries [Not Recovered/Not Resolved]
  - Tooth loss [Not Recovered/Not Resolved]
